FAERS Safety Report 6125597-5 (Version None)
Quarter: 2009Q1

REPORT INFORMATION
  Report Type: 
  Country: None (occurrence: None)
  Receive Date: 20090320
  Receipt Date: 20090310
  Transmission Date: 20090719
  Serious: Yes (Other)
  Sender: FDA-Public Use
  Company Number: US-JNJFOC-20090302901

PATIENT
  Sex: Male
  Weight: 100.25 kg

DRUGS (1)
  1. REMICADE [Suspect]
     Indication: RHEUMATOID ARTHRITIS
     Dosage: 4 VIALS; STARTED 2 WEEKS AGO
     Route: 042

REACTIONS (1)
  - HYPOAESTHESIA [None]
